FAERS Safety Report 13180934 (Version 1)
Quarter: 2017Q1

REPORT INFORMATION
  Report Type: Spontaneous
  Country: US (occurrence: US)
  Receive Date: 20170202
  Receipt Date: 20170202
  Transmission Date: 20170428
  Serious: No
  Sender: FDA-Public Use
  Company Number: US-SMITH AND NEPHEW, INC-2016SMT00075

PATIENT
  Age: 57 Year
  Sex: Female
  Weight: 72.56 kg

DRUGS (1)
  1. REGRANEX [Suspect]
     Active Substance: BECAPLERMIN
     Indication: DECUBITUS ULCER
     Dosage: UNK UNK, EVERY 48 HOURS
     Route: 061
     Dates: start: 20151224, end: 20151231

REACTIONS (10)
  - Nausea [Recovering/Resolving]
  - Incorrect drug administration duration [Recovered/Resolved]
  - Application site infection [Recovering/Resolving]
  - Diarrhoea [Recovered/Resolved]
  - Application site pain [Recovering/Resolving]
  - Headache [Recovered/Resolved]
  - Vomiting [Recovered/Resolved]
  - Application site rash [Recovering/Resolving]
  - Application site erythema [Recovering/Resolving]
  - Malaise [Recovering/Resolving]

NARRATIVE: CASE EVENT DATE: 201512
